FAERS Safety Report 24578929 (Version 2)
Quarter: 2025Q3

REPORT INFORMATION
  Report Type: Spontaneous
  Country: US (occurrence: US)
  Receive Date: 20241105
  Receipt Date: 20250816
  Transmission Date: 20251021
  Serious: No
  Sender: ALEXION PHARMACEUTICALS
  Company Number: US-AstraZeneca-CH-00740658AM

PATIENT
  Age: 58 Year
  Sex: Female

DRUGS (1)
  1. LOKELMA [Suspect]
     Active Substance: SODIUM ZIRCONIUM CYCLOSILICATE

REACTIONS (5)
  - Nausea [Unknown]
  - Vomiting [Unknown]
  - Blood potassium increased [Unknown]
  - Dialysis [Unknown]
  - Product dose omission issue [Unknown]
